FAERS Safety Report 12464789 (Version 1)
Quarter: 2016Q2

REPORT INFORMATION
  Report Type: Spontaneous
  Country: US (occurrence: US)
  Receive Date: 20160614
  Receipt Date: 20160614
  Transmission Date: 20160815
  Serious: Yes (Life-Threatening, Other)
  Sender: FDA-Public Use
  Company Number: US-PFIZER INC-2016292029

PATIENT
  Age: 2 Year
  Sex: Male

DRUGS (2)
  1. PHENYTOIN SODIUM. [Suspect]
     Active Substance: PHENYTOIN SODIUM
     Indication: EPILEPSY
     Dosage: 135 MG, UNK
     Route: 042
  2. PROPAFENONE. [Suspect]
     Active Substance: PROPAFENONE
     Dosage: 133 MG/KG, UNK (150-MG, 12 TABLETS)
     Route: 048

REACTIONS (6)
  - Electrocardiogram QT prolonged [Recovered/Resolved]
  - Respiratory arrest [Recovered/Resolved]
  - Pulse absent [Recovered/Resolved]
  - Bradycardia [Recovered/Resolved]
  - Electrocardiogram QRS complex prolonged [Recovered/Resolved]
  - Pulseless electrical activity [Recovered/Resolved]
